FAERS Safety Report 8964571 (Version 3)
Quarter: 2013Q3

REPORT INFORMATION
  Report Type: Spontaneous
  Country: US (occurrence: US)
  Receive Date: 20121213
  Receipt Date: 20130920
  Transmission Date: 20140515
  Serious: Yes (Hospitalization, Other)
  Sender: FDA-Public Use
  Company Number: US-US-EMD SERONO, INC.-7180751

PATIENT
  Age: 67 Year
  Sex: Female

DRUGS (1)
  1. REBIF [Suspect]
     Indication: MULTIPLE SCLEROSIS
     Route: 058
     Dates: start: 20020225

REACTIONS (5)
  - Coronary artery insufficiency [Recovering/Resolving]
  - Pneumonia [Recovering/Resolving]
  - Heart rate increased [Not Recovered/Not Resolved]
  - Dyskinesia [Recovered/Resolved]
  - Muscle spasms [Recovered/Resolved]
